FAERS Safety Report 8535676-0 (Version None)
Quarter: 2012Q2

REPORT INFORMATION
  Report Type: 
  Country: None (occurrence: None)
  Receive Date: 20120412
  Receipt Date: 20110411
  Transmission Date: 20120825
  Serious: Yes (Other)
  Sender: FDA-Public Use
  Company Number: PHHY2011US30438

PATIENT
  Age: 60 Year
  Sex: Female

DRUGS (4)
  1. ESTALIS COMBIPATCH (ESTRADIOL, NORETHISTERONE ACETATE) TRANS-THERAPEUT [Suspect]
     Dosage: 50/250, TRANSDERMAL
     Route: 062
     Dates: start: 20110321
  2. PRAVACHOL [Concomitant]
  3. MULTI-VITAMIN (CALCIUM PANTOTHENATE, FOLIC ACID, VITAMINS NOS) [Concomitant]
  4. EYE DROPS (TETRYZOLINE HYDROCHLORIDE) [Concomitant]

REACTIONS (5)
  - VAGINAL HAEMORRHAGE [None]
  - PAIN IN EXTREMITY [None]
  - NAUSEA [None]
  - STRESS [None]
  - MENORRHAGIA [None]
